FAERS Safety Report 18543433 (Version 5)
Quarter: 2021Q3

REPORT INFORMATION
  Report Type: Report from Study
  Country: CO (occurrence: CO)
  Receive Date: 20201124
  Receipt Date: 20210722
  Transmission Date: 20211014
  Serious: Yes (Hospitalization, Other)
  Sender: FDA-Public Use
  Company Number: CO-SHIRE-CO202012357

PATIENT
  Age: 2 Year
  Sex: Female
  Weight: 12 kg

DRUGS (11)
  1. HUMAN IMMUNOGLOBULIN; HYALURONIDASE [Suspect]
     Active Substance: HUMAN IMMUNOGLOBULIN G\HYALURONIDASE RECOMBINANT HUMAN
     Dosage: 0.8 MILLIGRAM/KILOGRAM, 1X A MONTH
     Route: 058
     Dates: start: 20200527
  2. HUMAN IMMUNOGLOBULIN; HYALURONIDASE [Suspect]
     Active Substance: HUMAN IMMUNOGLOBULIN G\HYALURONIDASE RECOMBINANT HUMAN
     Dosage: 12.5 GRAM
     Route: 058
     Dates: start: 20200206
  3. POCAPAVIR. [Concomitant]
     Active Substance: POCAPAVIR
     Indication: POST VACCINATION SYNDROME
     Dosage: UNK
     Route: 065
  4. HUMAN IMMUNOGLOBULIN; HYALURONIDASE [Suspect]
     Active Substance: HUMAN IMMUNOGLOBULIN G\HYALURONIDASE RECOMBINANT HUMAN
     Dosage: 2.5 GRAM, MONTHLY
     Route: 058
     Dates: start: 20200206
  5. HUMAN IMMUNOGLOBULIN; HYALURONIDASE [Suspect]
     Active Substance: HUMAN IMMUNOGLOBULIN G\HYALURONIDASE RECOMBINANT HUMAN
     Indication: PRIMARY IMMUNODEFICIENCY SYNDROME
     Dosage: 0.4 MILLIGRAM/KILOGRAM, 1X A MONTH
     Route: 058
     Dates: start: 20200206
  6. FLUCONAZOLE. [Concomitant]
     Active Substance: FLUCONAZOLE
     Indication: INFECTION PROPHYLAXIS
     Dosage: 4 MILLILITER, 3/WEEK
     Route: 065
  7. HUMAN IMMUNOGLOBULIN; HYALURONIDASE [Suspect]
     Active Substance: HUMAN IMMUNOGLOBULIN G\HYALURONIDASE RECOMBINANT HUMAN
     Dosage: 10 GRAM, MONTHLY
     Route: 058
     Dates: start: 20200206
  8. TRIMETHOPRIM. [Concomitant]
     Active Substance: TRIMETHOPRIM
     Dosage: 7 MILLILITER, 3/WEEK
     Route: 065
  9. GAMMARAAS [Concomitant]
     Dosage: UNK
     Route: 065
     Dates: start: 20210708
  10. SULFAMETHOXAZOLE AND TRIMETHOPRIM [Concomitant]
     Active Substance: SULFAMETHOXAZOLE\TRIMETHOPRIM
     Indication: PROPHYLAXIS
     Dosage: UNK
     Route: 065
  11. SULFAMETHOXAZOLE AND TRIMETHOPRIM [Concomitant]
     Active Substance: SULFAMETHOXAZOLE\TRIMETHOPRIM
     Indication: INFECTION PROPHYLAXIS

REACTIONS (14)
  - Irritability [Recovering/Resolving]
  - Product availability issue [Unknown]
  - Dengue haemorrhagic fever [Recovering/Resolving]
  - Urinary tract infection [Recovering/Resolving]
  - Otorrhoea [Recovering/Resolving]
  - Weight increased [Not Recovered/Not Resolved]
  - Inflammation [Recovering/Resolving]
  - Eye irritation [Not Recovered/Not Resolved]
  - Dysuria [Not Recovered/Not Resolved]
  - Conjunctivitis [Recovering/Resolving]
  - Haematochezia [Recovering/Resolving]
  - Ear pain [Recovering/Resolving]
  - Inappropriate schedule of product administration [Unknown]
  - Pyrexia [Not Recovered/Not Resolved]

NARRATIVE: CASE EVENT DATE: 20200312
